FAERS Safety Report 4503577-0 (Version None)
Quarter: 2004Q4

REPORT INFORMATION
  Report Type: 
  Country: None (occurrence: None)
  Receive Date: 20041112
  Receipt Date: 20041101
  Transmission Date: 20050328
  Serious: Yes (Disabling)
  Sender: FDA-Public Use
  Company Number: 2004084903

PATIENT
  Age: 62 Year
  Sex: Male

DRUGS (7)
  1. LIPITOR [Suspect]
     Indication: HYPERLIPIDAEMIA
     Dosage: 10 MG (10 MG, 1 IN 1 D), ORAL
     Route: 048
     Dates: start: 20040904
  2. SARPOGRELATE HYDROCHLORIDE (SARPOGRELATE HYDROCHLORIDE) [Suspect]
     Indication: ILL-DEFINED DISORDER
     Dosage: 300 MG (300 MG, 1 IN 1 D), ORAL
     Route: 048
     Dates: start: 20021130, end: 20041001
  3. VALSARTAN (VALSARTAN) [Concomitant]
  4. TRAPIDIL (TRAPIDIL) [Concomitant]
  5. NICERGOLINE (NICERGOLINE) [Concomitant]
  6. TOCOPHERYL NICOTINE (TOCOPHERYL NICOTINE) [Concomitant]
  7. ISOSORBIDE DINITRATE [Concomitant]

REACTIONS (4)
  - BLINDNESS [None]
  - DRUG INEFFECTIVE [None]
  - DYSPHONIA [None]
  - TINNITUS [None]
